FAERS Safety Report 16423853 (Version 1)
Quarter: 2019Q2

REPORT INFORMATION
  Report Type: Spontaneous
  Country: US (occurrence: US)
  Receive Date: 20190613
  Receipt Date: 20190613
  Transmission Date: 20190711
  Serious: No
  Sender: FDA-Public Use
  Company Number: US-GLAXOSMITHKLINE-US2019104207

PATIENT
  Sex: Female

DRUGS (2)
  1. BENLYSTA [Suspect]
     Active Substance: BELIMUMAB
     Indication: PRODUCT USED FOR UNKNOWN INDICATION
     Dosage: EVERY 4 WEEKS  CYC
     Route: 043
     Dates: start: 2015
  2. BENLYSTA [Suspect]
     Active Substance: BELIMUMAB
     Dosage: EVERY 4 WEEKS  CYC
     Route: 043
     Dates: start: 2018

REACTIONS (2)
  - Fatigue [Unknown]
  - Product dose omission [Unknown]
